FAERS Safety Report 18320896 (Version 2)
Quarter: 2020Q4

REPORT INFORMATION
  Report Type: Report from Study
  Country: US (occurrence: US)
  Receive Date: 20200928
  Receipt Date: 20201109
  Transmission Date: 20210113
  Serious: Yes (Hospitalization, Other)
  Sender: FDA-Public Use
  Company Number: US-BAYER-2020-185525

PATIENT
  Age: 63 Year
  Sex: Female

DRUGS (6)
  1. OXYCODONE [Concomitant]
     Active Substance: OXYCODONE
  2. GABAPENTIN. [Concomitant]
     Active Substance: GABAPENTIN
  3. HYDROCHLOROTHIAZIDE. [Concomitant]
     Active Substance: HYDROCHLOROTHIAZIDE
  4. LISINOPRIL. [Concomitant]
     Active Substance: LISINOPRIL
  5. STIVARGA [Suspect]
     Active Substance: REGORAFENIB
     Indication: COLORECTAL CANCER
     Dosage: 160 MG DAILY FOR 21 DAYS ON AND 7 DAYS OFF AT 2:00 PM DAILY WITH A LOW FAT MEAL
     Route: 048
     Dates: start: 20200825, end: 20201016
  6. PANTOPRAZOLE [Concomitant]
     Active Substance: PANTOPRAZOLE

REACTIONS (14)
  - Contusion [Recovering/Resolving]
  - Hypoaesthesia [None]
  - Pain in extremity [None]
  - Angular cheilitis [Not Recovered/Not Resolved]
  - Nausea [Recovering/Resolving]
  - Dehydration [Not Recovered/Not Resolved]
  - Fatigue [Not Recovered/Not Resolved]
  - Hypogeusia [Not Recovered/Not Resolved]
  - Fatigue [Recovering/Resolving]
  - Asthenia [Not Recovered/Not Resolved]
  - Decreased appetite [Recovering/Resolving]
  - Neuropathy peripheral [None]
  - Proctalgia [Not Recovered/Not Resolved]
  - Middle insomnia [None]

NARRATIVE: CASE EVENT DATE: 20200825
